FAERS Safety Report 13834349 (Version 1)
Quarter: 2017Q3

REPORT INFORMATION
  Report Type: Spontaneous
  Country: US (occurrence: US)
  Receive Date: 20170804
  Receipt Date: 20170804
  Transmission Date: 20171127
  Serious: Yes (Other)
  Sender: FDA-Public Use
  Company Number: None

PATIENT
  Age: 89 Year
  Sex: Female
  Weight: 80.81 kg

DRUGS (21)
  1. DESONIDE OINTMENT USP 0.05% [Concomitant]
     Active Substance: DESONIDE
  2. DILTIAZEM. [Concomitant]
     Active Substance: DILTIAZEM
  3. HYDROXYZINE [Concomitant]
     Active Substance: HYDROXYZINE HYDROCHLORIDE
  4. MYRBETRIQ [Concomitant]
     Active Substance: MIRABEGRON
  5. RAMIPRIL. [Concomitant]
     Active Substance: RAMIPRIL
  6. SYMBICORT [Concomitant]
     Active Substance: BUDESONIDE\FORMOTEROL FUMARATE DIHYDRATE
  7. TRIAMCINOLONE ACETONIDE CREAM [Concomitant]
     Active Substance: TRIAMCINOLONE ACETONIDE
  8. BABY ASPIRIN [Concomitant]
     Active Substance: ASPIRIN
  9. 50+A-Z MULTIVITAMIN [Concomitant]
  10. ACETAMINOPHEN-CODEINE #3 [Concomitant]
     Active Substance: ACETAMINOPHEN\CODEINE PHOSPHATE
  11. DIAZEPAM/VALIUM [Concomitant]
  12. PRESERVISION [Concomitant]
     Active Substance: MINERALS\VITAMINS
  13. MAXZIDE-25 [Concomitant]
     Active Substance: HYDROCHLOROTHIAZIDE\TRIAMTERENE
  14. CALCIUM 500+D3 [Concomitant]
  15. CERAVE MOISTURIZER [Concomitant]
     Active Substance: COSMETICS
  16. NITROFURANTOIN MONOHYDRATE MACROCRYSTALS [Suspect]
     Active Substance: NITROFURANTOIN\NITROFURANTOIN MONOHYDRATE
     Indication: URINARY TRACT INFECTION
     Dosage: 100MG 20 CAPSULES 1 CAPSULE TWICE DAILY BY MOUTH WITH FOOD
     Route: 048
     Dates: start: 20170710, end: 20170712
  17. LEVOTHYROXINE. [Concomitant]
     Active Substance: LEVOTHYROXINE
  18. CETAPHIL MOISTURIZER [Concomitant]
  19. TROSPIUM CHLORIDE. [Concomitant]
     Active Substance: TROSPIUM CHLORIDE
  20. ALPRAZOLAM/ZANAX [Concomitant]
  21. PROVENTIL (ALBUTEROL) [Concomitant]

REACTIONS (4)
  - Decreased appetite [None]
  - Abdominal pain [None]
  - Muscle spasms [None]
  - Nausea [None]

NARRATIVE: CASE EVENT DATE: 20170711
